FAERS Safety Report 4597437-7 (Version None)
Quarter: 2005Q1

REPORT INFORMATION
  Report Type: 
  Country: None (occurrence: None)
  Receive Date: 20050303
  Receipt Date: 20050228
  Transmission Date: 20050727
  Serious: Yes (Other)
  Sender: FDA-Public Use
  Company Number: PHBS2005BR02975

PATIENT
  Sex: Male
  Weight: 60 kg

DRUGS (2)
  1. TEGRETOL [Suspect]
     Indication: PETIT MAL EPILEPSY
     Dosage: 1 TABLET, QD
     Route: 048
     Dates: start: 20040901
  2. GARDENAL [Concomitant]
     Indication: CONVULSION
     Dosage: 100 MG, QD
     Route: 048

REACTIONS (5)
  - ABDOMINAL PAIN [None]
  - BLINDNESS [None]
  - CONFUSIONAL STATE [None]
  - HALLUCINATION [None]
  - PETIT MAL EPILEPSY [None]
